FAERS Safety Report 10518965 (Version 1)
Quarter: 2014Q4

REPORT INFORMATION
  Report Type: Spontaneous
  Country: US (occurrence: None)
  Receive Date: 20141014
  Receipt Date: 20141014
  Transmission Date: 20150528
  Serious: Yes (Hospitalization)
  Sender: FDA-Public Use
  Company Number: None

PATIENT
  Age: 91 Year
  Sex: Female
  Weight: 63 kg

DRUGS (16)
  1. PREGABALIN. [Suspect]
     Active Substance: PREGABALIN
     Indication: MUSCLE SPASMS
     Route: 048
  2. LIDOCAINE. [Concomitant]
     Active Substance: LIDOCAINE
  3. ALBUTEROL NEBULIZER [Concomitant]
     Active Substance: ALBUTEROL
  4. ACETAMINOPHEN. [Concomitant]
     Active Substance: ACETAMINOPHEN
  5. FUROSEMIDE. [Concomitant]
     Active Substance: FUROSEMIDE
  6. BACLOFEN. [Suspect]
     Active Substance: BACLOFEN
     Indication: MUSCLE SPASMS
     Route: 048
  7. BUDESONIDE/FORMETEROL [Concomitant]
  8. DOXERCALCIFEROL. [Concomitant]
     Active Substance: DOXERCALCIFEROL
  9. NATEGLINIDE. [Concomitant]
     Active Substance: NATEGLINIDE
  10. SODIUM BICARBONATE. [Concomitant]
     Active Substance: SODIUM BICARBONATE
  11. MULTIVITAMIN WITH IRON [Concomitant]
     Active Substance: IRON\VITAMINS
  12. BACLOFEN. [Suspect]
     Active Substance: BACLOFEN
     Route: 048
  13. IRON SUCROSE [Concomitant]
     Active Substance: IRON SUCROSE
  14. DILTIAZEM [Concomitant]
     Active Substance: DILTIAZEM
  15. WARFARIN [Concomitant]
     Active Substance: WARFARIN
  16. ALBUTEROL INHALER [Concomitant]
     Active Substance: ALBUTEROL

REACTIONS (3)
  - Drug hypersensitivity [None]
  - Asthenia [None]
  - Mental status changes [None]

NARRATIVE: CASE EVENT DATE: 20140507
